FAERS Safety Report 8008434-3 (Version None)
Quarter: 2011Q4

REPORT INFORMATION
  Report Type: 
  Country: None (occurrence: None)
  Receive Date: 20111227
  Receipt Date: 20111216
  Transmission Date: 20120403
  Serious: Yes (Other)
  Sender: FDA-Public Use
  Company Number: JP-ROCHE-1024676

PATIENT
  Age: 70 Year
  Sex: Female

DRUGS (1)
  1. RITUXIMAB [Suspect]
     Indication: LYMPHOMA

REACTIONS (1)
  - ATRIOVENTRICULAR BLOCK COMPLETE [None]
